FAERS Safety Report 8163067-3 (Version None)
Quarter: 2012Q1

REPORT INFORMATION
  Report Type: 
  Country: None (occurrence: None)
  Receive Date: 20120224
  Receipt Date: 20120207
  Transmission Date: 20120608
  Serious: Yes (Death, Hospitalization)
  Sender: FDA-Public Use
  Company Number: US-GLAXOSMITHKLINE-A0963367A

PATIENT
  Age: 55 Year
  Sex: Female
  Weight: 58 kg

DRUGS (24)
  1. DEPO-PROVERA [Concomitant]
     Dosage: 150MG EVERY 3 MONTHS
     Route: 042
  2. KLOR-CON [Concomitant]
     Dosage: 20MEQ PER DAY
  3. XIFAXAN [Concomitant]
     Dosage: 550MG TWICE PER DAY
  4. NEOMYCIN [Concomitant]
     Dosage: 500MG THREE TIMES PER DAY
  5. VIAGRA [Concomitant]
     Dosage: 50MG THREE TIMES PER DAY
  6. SANDOSTATIN [Concomitant]
     Dosage: 30MG WEEKLY
     Route: 030
  7. LACTULOSE [Concomitant]
     Dosage: 20G PER DAY
  8. MACROBID [Concomitant]
     Dosage: 100MG AT NIGHT
  9. ENTERAL NUTRITION [Concomitant]
     Route: 050
  10. OXYCONTIN [Concomitant]
     Dosage: 10MG THREE TIMES PER DAY
  11. ALBUTEROL [Concomitant]
     Dosage: 2PUFF SIX TIMES PER DAY
     Route: 055
  12. PYRIDOSTIGMINE BROMIDE [Concomitant]
     Dosage: 60MG THREE TIMES PER DAY
  13. MIDODRINE HYDROCHLORIDE [Concomitant]
     Dosage: 10MG THREE TIMES PER DAY
  14. ZOFRAN [Concomitant]
     Dosage: 4MG AS REQUIRED
  15. CREAM [Concomitant]
     Route: 061
  16. OMEPRAZOLE [Concomitant]
     Dosage: 40MG PER DAY
  17. OXYCODONE HCL [Concomitant]
     Indication: PAIN
     Dosage: 500MG AS REQUIRED
     Route: 048
  18. TRIAMCINOLONE [Concomitant]
     Route: 061
  19. LUBRIDERM [Concomitant]
     Route: 061
  20. FLOLAN [Suspect]
     Indication: PULMONARY HYPERTENSION
     Dosage: 78NGKM SEE DOSAGE TEXT
     Route: 042
     Dates: start: 20100311
  21. FUROSEMIDE [Concomitant]
     Dosage: 40MG PER DAY
  22. ACETAMINOPHEN [Concomitant]
     Dosage: 500MG FOUR TIMES PER DAY
  23. ZINC SULFATE [Concomitant]
     Dosage: 220MG TWICE PER DAY
  24. MULTI-VITAMIN [Concomitant]

REACTIONS (5)
  - LUNG DISORDER [None]
  - RESPIRATORY DISTRESS [None]
  - PNEUMONIA [None]
  - DEATH [None]
  - PYREXIA [None]
